FAERS Safety Report 4506756-1 (Version None)
Quarter: 2004Q4

REPORT INFORMATION
  Report Type: 
  Country: None (occurrence: None)
  Receive Date: 20041117
  Receipt Date: 20041105
  Transmission Date: 20050328
  Serious: Yes (Hospitalization)
  Sender: FDA-Public Use
  Company Number: 2004UW22976

PATIENT
  Age: 68 Year
  Sex: Male

DRUGS (1)
  1. ZOLADEX [Suspect]
     Dosage: 10.8 MG Q3MO IM
     Route: 030
     Dates: start: 20041018

REACTIONS (1)
  - INJECTION SITE ABSCESS [None]
